FAERS Safety Report 22822428 (Version 3)
Quarter: 2023Q4

REPORT INFORMATION
  Report Type: Report from Study
  Country: UA (occurrence: UA)
  Receive Date: 20230815
  Receipt Date: 20231004
  Transmission Date: 20240110
  Serious: No
  Sender: FDA-Public Use
  Company Number: UA-ABBVIE-4749133

PATIENT
  Age: 65 Year
  Sex: Female

DRUGS (11)
  1. ADALIMUMAB [Suspect]
     Active Substance: ADALIMUMAB
     Indication: Psoriatic arthropathy
     Dosage: 40MG/0.8ML
     Route: 058
     Dates: start: 20190607, end: 20191108
  2. PLACEBO [Suspect]
     Active Substance: UNSPECIFIED INGREDIENT
     Indication: Psoriatic arthropathy
     Route: 048
     Dates: start: 20190607, end: 20191121
  3. HYDROCHLOROTHIAZIDE\LOSARTAN POTASSIUM [Concomitant]
     Active Substance: HYDROCHLOROTHIAZIDE\LOSARTAN POTASSIUM
     Indication: Hypertension
     Route: 048
     Dates: start: 2016
  4. DICLOFENAC [Concomitant]
     Active Substance: DICLOFENAC
     Indication: Psoriatic arthropathy
     Route: 048
     Dates: start: 2019
  5. HYDROCHLOROTHIAZIDE [Concomitant]
     Active Substance: HYDROCHLOROTHIAZIDE
     Indication: Hypertension
     Route: 048
     Dates: start: 2016
  6. GLUTARGIN(ARGININUM) [Concomitant]
     Indication: Steatohepatitis
     Dosage: TIME INTERVAL: 0.33333333 DAYS
     Route: 048
     Dates: start: 20190919, end: 20191028
  7. PANCRELIPASE [Concomitant]
     Active Substance: PANCRELIPASE
     Indication: Pancreatitis chronic
     Dosage: TIME INTERVAL: 0.33333333 DAYS
     Route: 048
     Dates: start: 20191027, end: 20210318
  8. PANTOPRAZOLE [Concomitant]
     Active Substance: PANTOPRAZOLE
     Indication: Gastritis prophylaxis
     Dosage: EVERY 15 DAYS OF THE MONTH
     Route: 048
     Dates: start: 20191027, end: 20200925
  9. HEPARHIZINE [Concomitant]
     Indication: Drug-induced liver injury
     Dosage: TIME INTERVAL: 0.33333333 DAYS: 2 CAPSULE
     Route: 048
     Dates: start: 20191223, end: 20221028
  10. ERMITAL [Concomitant]
     Indication: Pancreatitis chronic
     Route: 048
     Dates: start: 20191027, end: 20200925
  11. GASTRO-NORM(BISMUTHI SUBCITRAS) [Concomitant]
     Indication: Gastritis prophylaxis
     Route: 048
     Dates: start: 20191126, end: 20200118

REACTIONS (2)
  - Drug-induced liver injury [Recovered/Resolved]
  - Drug-induced liver injury [Recovered/Resolved]

NARRATIVE: CASE EVENT DATE: 20190927
